FAERS Safety Report 9688460 (Version 3)
Quarter: 2014Q1

REPORT INFORMATION
  Report Type: Spontaneous
  Country: DK (occurrence: DE)
  Receive Date: 20131114
  Receipt Date: 20140131
  Transmission Date: 20141002
  Serious: Yes (Death)
  Sender: FDA-Public Use
  Company Number: DE-FRI-1000051147

PATIENT
  Age: 29 Year
  Sex: Female

DRUGS (4)
  1. ESCITALOPRAM [Suspect]
     Indication: GENERALISED ANXIETY DISORDER
     Dosage: 10 MG
     Route: 048
     Dates: start: 20130617
  2. ESCITALOPRAM [Suspect]
     Indication: DEPRESSION
  3. ESCITALOPRAM ORAL SOLUTION [Suspect]
     Indication: GENERALISED ANXIETY DISORDER
     Dosage: SLOW DOSAGE INCREASE
     Route: 048
     Dates: start: 20130411, end: 20130616
  4. ESCITALOPRAM ORAL SOLUTION [Suspect]
     Indication: DEPRESSION

REACTIONS (3)
  - Sudden death [Fatal]
  - Hyperhidrosis [Fatal]
  - Weight increased [Fatal]
